FAERS Safety Report 9668436 (Version 1)
Quarter: 2013Q4

REPORT INFORMATION
  Report Type: Spontaneous
  Country: US (occurrence: US)
  Receive Date: 20131105
  Receipt Date: 20131105
  Transmission Date: 20140711
  Serious: Yes (Other)
  Sender: FDA-Public Use
  Company Number: US-009507513-1311USA000594

PATIENT
  Age: 59 Year
  Sex: Male

DRUGS (2)
  1. INTRONA [Suspect]
     Dosage: UNK, VIAL
     Dates: start: 2012, end: 20131016
  2. ASPIRIN [Concomitant]

REACTIONS (2)
  - Loss of consciousness [Recovering/Resolving]
  - Pyrexia [Recovering/Resolving]
